FAERS Safety Report 10898756 (Version 1)
Quarter: 2015Q1

REPORT INFORMATION
  Report Type: Report from Study
  Country: US (occurrence: US)
  Receive Date: 20150309
  Receipt Date: 20150309
  Transmission Date: 20150721
  Serious: No
  Sender: FDA-Public Use
  Company Number: US-ABBVIE-14P-163-1216606-00

PATIENT
  Age: 40 Year
  Sex: Female

DRUGS (4)
  1. LUPRON DEPOT [Suspect]
     Active Substance: LEUPROLIDE ACETATE
     Indication: ENDOMETRIOSIS
     Dates: start: 201312, end: 201312
  2. MULTIVITAMIN [Concomitant]
     Active Substance: VITAMINS
     Indication: PRODUCT USED FOR UNKNOWN INDICATION
     Dosage: PILL
     Route: 048
  3. LUPRON DEPOT [Suspect]
     Active Substance: LEUPROLIDE ACETATE
     Dates: start: 20140314
  4. CALCIUM [Concomitant]
     Active Substance: CALCIUM
     Indication: PRODUCT USED FOR UNKNOWN INDICATION
     Route: 048

REACTIONS (7)
  - Musculoskeletal stiffness [Recovered/Resolved]
  - Musculoskeletal stiffness [Not Recovered/Not Resolved]
  - Joint swelling [Recovered/Resolved]
  - Generalised oedema [Recovering/Resolving]
  - Joint stiffness [Recovered/Resolved]
  - Generalised oedema [Not Recovered/Not Resolved]
  - Peripheral swelling [Recovered/Resolved]

NARRATIVE: CASE EVENT DATE: 201312
